FAERS Safety Report 10455047 (Version 1)
Quarter: 2014Q3

REPORT INFORMATION
  Report Type: Spontaneous
  Country: FR (occurrence: FR)
  Receive Date: 20140915
  Receipt Date: 20140915
  Transmission Date: 20150326
  Serious: Yes (Hospitalization)
  Sender: FDA-Public Use
  Company Number: FR-BRISTOL-MYERS SQUIBB COMPANY-21382270

PATIENT
  Age: 72 Year
  Sex: Female

DRUGS (3)
  1. GLUCOPHAGE [Suspect]
     Active Substance: METFORMIN HYDROCHLORIDE
     Indication: TYPE 2 DIABETES MELLITUS
     Dosage: THERAPY DURATION: MORE THAN 20 YEARS.?3000 MG (1000 MG, 3 IN 1 DAY)
     Route: 048
  2. TARKA [Suspect]
     Active Substance: TRANDOLAPRIL\VERAPAMIL HYDROCHLORIDE
     Dates: end: 20140712
  3. DIAMICRON [Concomitant]
     Active Substance: GLICLAZIDE
     Indication: TYPE 2 DIABETES MELLITUS
     Dates: start: 201405, end: 20140712

REACTIONS (3)
  - Renal failure acute [Recovered/Resolved]
  - Lactic acidosis [Recovered/Resolved]
  - Vitamin B12 deficiency [Recovering/Resolving]

NARRATIVE: CASE EVENT DATE: 20140712
